FAERS Safety Report 8030692-X (Version None)
Quarter: 2012Q1

REPORT INFORMATION
  Report Type: 
  Country: None (occurrence: None)
  Receive Date: 20120109
  Receipt Date: 20120104
  Transmission Date: 20120608
  Serious: Yes (Other)
  Sender: FDA-Public Use
  Company Number: PHEH2011US012108

PATIENT
  Sex: Female
  Weight: 73.016 kg

DRUGS (2)
  1. DIOVAN HCT [Suspect]
     Indication: HYPERTENSION
     Dosage: UNK
     Dates: start: 20110901
  2. BENICAR HCT [Suspect]
     Indication: HYPERTENSION
     Dosage: 1 DF (40/12.5 MG), QD
     Dates: start: 20111121, end: 20111128

REACTIONS (4)
  - BACK DISORDER [None]
  - ABASIA [None]
  - PAIN [None]
  - GENERALISED OEDEMA [None]
